FAERS Safety Report 13405036 (Version 1)
Quarter: 2017Q2

REPORT INFORMATION
  Report Type: Other
  Country: US (occurrence: US)
  Receive Date: 20170405
  Receipt Date: 20170405
  Transmission Date: 20170830
  Serious: No
  Sender: FDA-Public Use
  Company Number: US-LUPIN PHARMACEUTICALS INC.-2017-00698

PATIENT

DRUGS (1)
  1. ZOLPIDEM TARTRATE EXTENDED RELEASE TABLET USP, 12.5 MG [Suspect]
     Active Substance: ZOLPIDEM TARTRATE
     Dosage: UNK UNK,UNK,UNKNOWN
     Route: 065

REACTIONS (2)
  - Product packaging quantity issue [Unknown]
  - No adverse event [Unknown]
